FAERS Safety Report 7393107-0 (Version None)
Quarter: 2011Q2

REPORT INFORMATION
  Report Type: 
  Country: None (occurrence: None)
  Receive Date: 20110404
  Receipt Date: 20110324
  Transmission Date: 20111010
  Serious: Yes (Hospitalization)
  Sender: FDA-Public Use
  Company Number: JP-ELI_LILLY_AND_COMPANY-JP201102000692

PATIENT
  Age: 35 Year
  Sex: Female

DRUGS (6)
  1. PELEX [Concomitant]
     Route: 048
  2. ZYPREXA [Suspect]
     Route: 048
  3. TASMOLIN [Concomitant]
     Route: 048
  4. LORFENAMIN [Concomitant]
     Dosage: UNK
     Route: 048
     Dates: start: 20110117
  5. LEVOTOMIN [Concomitant]
     Route: 048
  6. VEGETAMIN B [Concomitant]
     Route: 048

REACTIONS (4)
  - HEPATOSPLENOMEGALY [None]
  - HEPATITIS [None]
  - CYTOMEGALOVIRUS TEST POSITIVE [None]
  - CONSTIPATION [None]
